FAERS Safety Report 15884858 (Version 1)
Quarter: 2019Q1

REPORT INFORMATION
  Report Type: Spontaneous
  Country: US (occurrence: US)
  Receive Date: 20190129
  Receipt Date: 20190129
  Transmission Date: 20190417
  Serious: No
  Sender: FDA-Public Use
  Company Number: US-EGALET US INC-US-2018EGA000535

PATIENT

DRUGS (3)
  1. ARYMO ER [Suspect]
     Active Substance: MORPHINE SULFATE
     Indication: NECK PAIN
  2. ARYMO ER [Suspect]
     Active Substance: MORPHINE SULFATE
     Indication: ARTHRALGIA
  3. ARYMO ER [Suspect]
     Active Substance: MORPHINE SULFATE
     Indication: BACK PAIN
     Dosage: UNK

REACTIONS (1)
  - Malaise [Unknown]
